FAERS Safety Report 6380074-1 (Version None)
Quarter: 2009Q3

REPORT INFORMATION
  Report Type: 
  Country: None (occurrence: None)
  Receive Date: 20090929
  Receipt Date: 20090917
  Transmission Date: 20100115
  Serious: Yes (Hospitalization)
  Sender: FDA-Public Use
  Company Number: AU-BAXTER-2009BH014279

PATIENT
  Sex: Male

DRUGS (1)
  1. TISSEEL VH KIT [Suspect]
     Indication: SURGERY
     Route: 065

REACTIONS (3)
  - PAIN [None]
  - POST PROCEDURAL COMPLICATION [None]
  - SWELLING [None]
